FAERS Safety Report 8756402 (Version 1)
Quarter: 2012Q4

REPORT INFORMATION
  Report Type: Report from Study
  Country: US (occurrence: US)
  Receive Date: 20120828
  Receipt Date: 20120828
  Transmission Date: 20130627
  Serious: Yes (Hospitalization, Other)
  Sender: FDA-Public Use
  Company Number: US-009507513-1208USA007268

PATIENT

DRUGS (10)
  1. VICTRELIS [Suspect]
     Indication: HEPATITIS C
     Dosage: 4 DF, tid
     Dates: start: 20110927
  2. PEGASYS [Suspect]
     Indication: HEPATITIS C
     Dosage: 180 Microgram, qw
     Route: 058
     Dates: start: 20110829
  3. REBETOL [Suspect]
     Indication: HEPATITIS C
     Dosage: 1200 mg, qd
     Dates: start: 20110829
  4. REBETOL [Suspect]
     Dosage: 600 mg, qd
  5. PROAIR (ALBUTEROL SULFATE) [Concomitant]
  6. PROCARDIA XL [Concomitant]
  7. ADVAIR [Concomitant]
  8. LEXAPRO [Concomitant]
  9. ATIVAN [Concomitant]
  10. ACCOLATE [Concomitant]

REACTIONS (21)
  - Pneumonia [Unknown]
  - Anaemia [Unknown]
  - Rash [Unknown]
  - Pancytopenia [Unknown]
  - Stomatitis [Unknown]
  - Rash [Unknown]
  - White blood cell count decreased [Unknown]
  - Red blood cell count decreased [Unknown]
  - Platelet count decreased [Unknown]
  - Lip ulceration [Unknown]
  - Fatigue [Unknown]
  - Tinnitus [Unknown]
  - Middle ear effusion [Unknown]
  - Sinusitis [Unknown]
  - Eating disorder [Unknown]
  - Chapped lips [Unknown]
  - Back pain [Unknown]
  - Fatigue [Unknown]
  - Sensory disturbance [Unknown]
  - Oropharyngeal pain [Recovered/Resolved]
  - Weight decreased [Unknown]
